FAERS Safety Report 12447782 (Version 2)
Quarter: 2018Q2

REPORT INFORMATION
  Report Type: Spontaneous
  Country: US (occurrence: US)
  Receive Date: 20160608
  Receipt Date: 20180515
  Transmission Date: 20180711
  Serious: No
  Sender: FDA-Public Use
  Company Number: US-SA-2016SA095038

PATIENT
  Age: 66 Year
  Sex: Female

DRUGS (2)
  1. LANTUS [Concomitant]
     Active Substance: INSULIN GLARGINE
     Dosage: DOSE:150 UNIT(S)
  2. TOUJEO [Suspect]
     Active Substance: INSULIN GLARGINE
     Indication: DIABETES MELLITUS
     Dosage: DOSE:142 UNIT(S)
     Route: 065

REACTIONS (3)
  - Joint swelling [Not Recovered/Not Resolved]
  - Product use issue [Unknown]
  - Peripheral swelling [Not Recovered/Not Resolved]
